FAERS Safety Report 24364684 (Version 1)
Quarter: 2024Q3

REPORT INFORMATION
  Report Type: Spontaneous
  Country: AU (occurrence: AU)
  Receive Date: 20240926
  Receipt Date: 20240926
  Transmission Date: 20241016
  Serious: Yes (Hospitalization, Other)
  Sender: NOVO NORDISK
  Company Number: AU-NOVOPROD-1284940

PATIENT
  Age: 65 Year
  Sex: Male
  Weight: 125 kg

DRUGS (1)
  1. OZEMPIC [Suspect]
     Active Substance: SEMAGLUTIDE
     Indication: Weight control
     Dosage: 0.25 MG, QW

REACTIONS (3)
  - Gastric residual increased [Unknown]
  - Intestinal polyp [Unknown]
  - Off label use [Unknown]
